FAERS Safety Report 7477778-6 (Version None)
Quarter: 2011Q2

REPORT INFORMATION
  Report Type: 
  Country: None (occurrence: None)
  Receive Date: 20110513
  Receipt Date: 20110331
  Transmission Date: 20111010
  Serious: No
  Sender: FDA-Public Use
  Company Number: A0920875A

PATIENT
  Age: 54 Year
  Sex: Female

DRUGS (6)
  1. TREXIMET [Suspect]
     Indication: MIGRAINE
     Dosage: 1TAB AS REQUIRED
     Route: 048
     Dates: start: 20110325, end: 20110325
  2. SOMA [Concomitant]
  3. LORTAB [Concomitant]
  4. OXYCONTIN [Concomitant]
  5. BENICAR [Concomitant]
  6. MIRTAZAPINE [Concomitant]

REACTIONS (5)
  - PHARYNGEAL OEDEMA [None]
  - DYSGEUSIA [None]
  - FOREIGN BODY [None]
  - ILL-DEFINED DISORDER [None]
  - PAIN [None]
